FAERS Safety Report 6359974-4 (Version None)
Quarter: 2009Q3

REPORT INFORMATION
  Report Type: 
  Country: None (occurrence: None)
  Receive Date: 20090917
  Receipt Date: 20090908
  Transmission Date: 20100115
  Serious: Yes (Other)
  Sender: FDA-Public Use
  Company Number: PT-GENENTECH-290355

PATIENT
  Age: 70 Year
  Sex: Male

DRUGS (3)
  1. AVASTIN [Suspect]
     Indication: OLIGODENDROGLIOMA
     Dosage: UNK
     Route: 065
     Dates: start: 20080301
  2. IRINOTECAN HCL [Suspect]
     Indication: OLIGODENDROGLIOMA
     Dosage: UNK
     Route: 065
     Dates: start: 20080301
  3. DEXAMETHASONE [Suspect]
     Indication: OLIGODENDROGLIOMA
     Dosage: 1 MG, UNK
     Route: 065
     Dates: start: 20080301

REACTIONS (1)
  - PYREXIA [None]
